FAERS Safety Report 12963704 (Version 1)
Quarter: 2016Q4

REPORT INFORMATION
  Report Type: Spontaneous
  Country: AU (occurrence: AU)
  Receive Date: 20161122
  Receipt Date: 20161122
  Transmission Date: 20170207
  Serious: Yes (Hospitalization)
  Sender: FDA-Public Use
  Company Number: AU-APOTEX-2016AP014570

PATIENT
  Sex: Male

DRUGS (1)
  1. DICLOFENAC SODIUM. [Suspect]
     Active Substance: DICLOFENAC SODIUM
     Indication: BACK PAIN
     Dosage: UNK
     Route: 065

REACTIONS (8)
  - Pulseless electrical activity [Unknown]
  - Tryptase increased [Unknown]
  - Presyncope [Unknown]
  - Systemic mastocytosis [Unknown]
  - Dizziness [Unknown]
  - Hypotension [Unknown]
  - Cardiac arrest [Unknown]
  - Loss of consciousness [Unknown]
